FAERS Safety Report 10914136 (Version 1)
Quarter: 2015Q1

REPORT INFORMATION
  Report Type: Spontaneous
  Country: AU (occurrence: AU)
  Receive Date: 20150313
  Receipt Date: 20150313
  Transmission Date: 20150721
  Serious: Yes (Other)
  Sender: FDA-Public Use
  Company Number: AU-BAYER-2015-033489

PATIENT
  Sex: Female

DRUGS (1)
  1. ASPRO [Suspect]
     Active Substance: ASPIRIN\SODIUM BICARBONATE
     Dosage: UNK

REACTIONS (1)
  - Ulcer [None]
